FAERS Safety Report 17016451 (Version 7)
Quarter: 2022Q2

REPORT INFORMATION
  Report Type: Spontaneous
  Country: US (occurrence: US)
  Receive Date: 20191111
  Receipt Date: 20220525
  Transmission Date: 20220720
  Serious: Yes (Hospitalization, Other)
  Sender: FDA-Public Use
  Company Number: US-PFIZER INC-2019445624

PATIENT
  Age: 85 Year
  Sex: Female
  Weight: 77.11 kg

DRUGS (5)
  1. IBRANCE [Suspect]
     Active Substance: PALBOCICLIB
     Indication: Breast cancer female
     Dosage: 125 MG, CYCLIC (QD D 1-21 OF 28 D)
     Route: 048
     Dates: start: 201907, end: 202007
  2. IBRANCE [Suspect]
     Active Substance: PALBOCICLIB
     Indication: Breast cancer metastatic
     Dosage: 125 MG, CYCLIC ((QD D 1-21 OF 28 D)
     Route: 048
     Dates: start: 202102, end: 202109
  3. IBRANCE [Suspect]
     Active Substance: PALBOCICLIB
     Dosage: 125 MG, CYCLIC (QD D 1-21 OF 28 D)
     Route: 048
     Dates: start: 20220126, end: 20220216
  4. IBRANCE [Suspect]
     Active Substance: PALBOCICLIB
     Dosage: 125 MG, CYCLIC ((QD D 1-21 OF 28 D)
     Dates: start: 20220418
  5. ELIQUIS [Concomitant]
     Active Substance: APIXABAN
     Indication: Atrial fibrillation
     Dosage: UNK

REACTIONS (8)
  - Dyspnoea [Unknown]
  - COVID-19 [Unknown]
  - Cerebrovascular accident [Unknown]
  - Neoplasm progression [Unknown]
  - Memory impairment [Unknown]
  - Coronavirus infection [Unknown]
  - Dizziness [Unknown]
  - Asthenia [Unknown]
